FAERS Safety Report 25872357 (Version 2)
Quarter: 2025Q4

REPORT INFORMATION
  Report Type: Report from Study
  Country: HK (occurrence: HK)
  Receive Date: 20251002
  Receipt Date: 20251002
  Transmission Date: 20260118
  Serious: Yes (Hospitalization, Other)
  Sender: MERCK SHARP & DOHME LLC
  Company Number: HK-009507513-2333813

PATIENT
  Sex: Female

DRUGS (1)
  1. PEMBROLIZUMAB [Suspect]
     Active Substance: PEMBROLIZUMAB
     Indication: Breast cancer stage II
     Dosage: 200 MG
     Dates: start: 20231128, end: 20250106

REACTIONS (4)
  - Pneumonia [Unknown]
  - Cortisol decreased [Unknown]
  - Surgery [Recovered/Resolved]
  - Radiotherapy [Recovered/Resolved]

NARRATIVE: CASE EVENT DATE: 20250101
